FAERS Safety Report 17691221 (Version 3)
Quarter: 2020Q2

REPORT INFORMATION
  Report Type: Report from Study
  Country: DE (occurrence: DE)
  Receive Date: 20200422
  Receipt Date: 20200601
  Transmission Date: 20200714
  Serious: Yes (Life-Threatening, Hospitalization)
  Sender: FDA-Public Use
  Company Number: DE-ROCHE-2583603

PATIENT
  Age: 64 Year
  Sex: Female
  Weight: 105 kg

DRUGS (13)
  1. CARBOPLATIN. [Suspect]
     Active Substance: CARBOPLATIN
     Indication: BREAST CANCER
     Dosage: LAST DOSE RECEIVED BEFORE SAE ON 01/APR/2020 (TOTAL DOSE 294,72 MG), 29-APR-2020
     Route: 065
     Dates: start: 20200122
  2. TORASEMID [Concomitant]
     Active Substance: TORSEMIDE
     Indication: HYPERTENSION
     Route: 065
     Dates: start: 19850101, end: 20200417
  3. AMLODIPINE [Concomitant]
     Active Substance: AMLODIPINE BESYLATE
     Indication: HYPERTENSION
     Route: 065
     Dates: start: 19850101, end: 20200417
  4. TRASTUZUMAB. [Suspect]
     Active Substance: TRASTUZUMAB
     Indication: BREAST CANCER
     Dosage: LAT DOSE RECEIVED BEFORE SAE ON 25/MAR/2020 (702 MG), 22-APR-2020
     Route: 042
     Dates: start: 20200122
  5. CARBOPLATIN. [Suspect]
     Active Substance: CARBOPLATIN
     Dosage: LAST DOSE RECEIVED BEFORE SAE ON 01/APR/2020 (TOTAL DOSE 258.18 MG)
     Route: 065
     Dates: start: 20200325
  6. CALCIUM [Concomitant]
     Active Substance: CALCIUM
     Indication: HYPOCALCAEMIA
     Route: 065
     Dates: start: 20200416
  7. METOPROLOL. [Concomitant]
     Active Substance: METOPROLOL
     Indication: HYPERTENSION
     Route: 065
     Dates: start: 19850101, end: 20200418
  8. PACLITAXEL. [Suspect]
     Active Substance: PACLITAXEL
     Indication: BREAST CANCER
     Dosage: LAST DOSE RECEIVED BEFORE SAE ON 01/APR/2020 (TOTAL DOSE 193.50 MG), 29-APR-2020
     Route: 065
     Dates: start: 20200325
  9. PACLITAXEL. [Suspect]
     Active Substance: PACLITAXEL
     Dosage: LAST DOSE RECEIVED BEFORE SAE ON 01/APR/2020 (193 MG)
     Route: 065
     Dates: start: 20200122
  10. PERTUZUMAB. [Suspect]
     Active Substance: PERTUZUMAB
     Indication: BREAST CANCER
     Dosage: LAST DOSE RECEIVED BEFORE SAE ON 25/MAR/2020 (TOTAL DOSE 420 MG), 22-APR-2020
     Route: 065
     Dates: start: 20200122
  11. BLINDED ATEZOLIZUMAB [Suspect]
     Active Substance: ATEZOLIZUMAB
     Indication: BREAST CANCER
     Dosage: LAST DOSE RECEIVED BEFOR SAE ON 25/MAR/2020, 22-APR-2020
     Route: 042
     Dates: start: 20200122
  12. METOPROLOL. [Concomitant]
     Active Substance: METOPROLOL
     Route: 065
     Dates: start: 20200505
  13. IRBESARTAN. [Concomitant]
     Active Substance: IRBESARTAN
     Indication: HYPERTENSION
     Route: 065
     Dates: start: 19850101, end: 20200417

REACTIONS (6)
  - General physical health deterioration [Not Recovered/Not Resolved]
  - Anaemia [Recovered/Resolved]
  - Decreased appetite [Recovered/Resolved]
  - Diarrhoea [Recovered/Resolved]
  - Gastrointestinal disorder [Not Recovered/Not Resolved]
  - Cardiovascular disorder [Recovered/Resolved]

NARRATIVE: CASE EVENT DATE: 20200409
